FAERS Safety Report 16161054 (Version 1)
Quarter: 2019Q2

REPORT INFORMATION
  Report Type: Spontaneous
  Country: US (occurrence: US)
  Receive Date: 20190405
  Receipt Date: 20190405
  Transmission Date: 20190711
  Serious: No
  Sender: FDA-Public Use
  Company Number: US-JNJFOC-20190315858

PATIENT
  Sex: Female
  Weight: 45.36 kg

DRUGS (1)
  1. IMODIUM [Suspect]
     Active Substance: LOPERAMIDE HYDROCHLORIDE
     Indication: DIARRHOEA
     Route: 048
     Dates: start: 20190310, end: 20190310

REACTIONS (4)
  - Eating disorder [Unknown]
  - Malaise [Unknown]
  - Self-medication [Unknown]
  - Incorrect dose administered [Unknown]
